FAERS Safety Report 4609510-5 (Version None)
Quarter: 2005Q1

REPORT INFORMATION
  Report Type: 
  Country: None (occurrence: None)
  Receive Date: 20050314
  Receipt Date: 20050314
  Transmission Date: 20050727
  Serious: Yes (Life-Threatening)
  Sender: FDA-Public Use
  Company Number: None

PATIENT
  Age: 44 Year
  Sex: Female
  Weight: 70.3075 kg

DRUGS (2)
  1. ALLEGRA [Suspect]
     Indication: URTICARIA
     Dosage: 2 TABS 4 HRS ORAL
     Route: 048
     Dates: start: 20041030, end: 20050210
  2. BENADRYL [Suspect]
     Indication: URTICARIA
     Dosage: 2 TABS 4 HRS ORAL
     Route: 048
     Dates: start: 20041113, end: 20050219

REACTIONS (4)
  - FEELING ABNORMAL [None]
  - GASTROOESOPHAGEAL REFLUX DISEASE [None]
  - PHARMACEUTICAL PRODUCT COMPLAINT [None]
  - THROAT TIGHTNESS [None]
